FAERS Safety Report 20540653 (Version 1)
Quarter: 2022Q1

REPORT INFORMATION
  Report Type: Spontaneous
  Country: CA (occurrence: CA)
  Receive Date: 20220302
  Receipt Date: 20220302
  Transmission Date: 20220423
  Serious: Yes (Other)
  Sender: FDA-Public Use
  Company Number: CA-JNJFOC-20211059334

PATIENT
  Age: 35 Year
  Sex: Male

DRUGS (3)
  1. INFLIXIMAB [Suspect]
     Active Substance: INFLIXIMAB
     Indication: Crohn^s disease
     Route: 042
  2. MESALAMINE [Concomitant]
     Active Substance: MESALAMINE
     Route: 065
  3. METHOTREXATE [Concomitant]
     Active Substance: METHOTREXATE
     Route: 065

REACTIONS (12)
  - Inflammatory bowel disease [Unknown]
  - C-reactive protein increased [Unknown]
  - Flatulence [Unknown]
  - Loss of personal independence in daily activities [Unknown]
  - Eczema [Unknown]
  - Abdominal pain upper [Unknown]
  - Arthralgia [Unknown]
  - Condition aggravated [Unknown]
  - Heart rate decreased [Unknown]
  - Therapeutic response shortened [Unknown]
  - Rash [Unknown]
  - Off label use [Unknown]
